FAERS Safety Report 6501770 (Version 1)
Quarter: 2020Q3

REPORT INFORMATION
  Report Type: Spontaneous
  Country: GB (occurrence: GB)
  Receive Date: 20071214
  Receipt Date: 20071214
  Transmission Date: 20201104
  Serious: Yes (Hospitalization)
  Sender: FDA-Public Use
  Company Number: GB-ROCHE-535738

PATIENT
  Age: 71 Year

DRUGS (6)
  1. IBANDRONIC ACID. [Suspect]
     Active Substance: IBANDRONIC ACID
     Indication: OSTEOPOROSIS
     Route: 048
     Dates: start: 20050624, end: 20070917
  2. CITALOPRAM [Concomitant]
     Active Substance: CITALOPRAM HYDROBROMIDE
  3. LEVOTHYROXINE. [Concomitant]
     Active Substance: LEVOTHYROXINE
  4. AMLODIPINE [Concomitant]
     Active Substance: AMLODIPINE BESYLATE
  5. QUININE SULFATE. [Concomitant]
     Active Substance: QUININE SULFATE
  6. MESALAMINE. [Concomitant]
     Active Substance: MESALAMINE

REACTIONS (1)
  - Osteonecrosis [Not Recovered/Not Resolved]
